FAERS Safety Report 11913882 (Version 2)
Quarter: 2016Q1

REPORT INFORMATION
  Report Type: Report from Study
  Country: TW (occurrence: TW)
  Receive Date: 20160113
  Receipt Date: 20160129
  Transmission Date: 20160526
  Serious: Yes (Hospitalization)
  Sender: FDA-Public Use
  Company Number: TW-BRISTOL-MYERS SQUIBB COMPANY-BMS-2016-000182

PATIENT
  Age: 51 Year
  Sex: Male
  Weight: 65 kg

DRUGS (6)
  1. VINCRISTINE [Suspect]
     Active Substance: VINCRISTINE
     Indication: LIP AND/OR ORAL CAVITY CANCER
     Dosage: 1.8 MG, UNK
     Route: 065
     Dates: start: 20151218, end: 20151227
  2. FLUOROURACIL. [Suspect]
     Active Substance: FLUOROURACIL
     Indication: LIP AND/OR ORAL CAVITY CANCER
     Dosage: 1750 MG, UNK
     Route: 065
     Dates: start: 20151218, end: 20151227
  3. CETUXIMAB [Suspect]
     Active Substance: CETUXIMAB
     Dosage: UNK
     Route: 065
     Dates: start: 201601
  4. MITOMYCIN. [Suspect]
     Active Substance: MITOMYCIN
     Indication: LIP AND/OR ORAL CAVITY CANCER
     Dosage: 7 MG, UNK
     Route: 065
     Dates: start: 20151218, end: 20151227
  5. CETUXIMAB [Suspect]
     Active Substance: CETUXIMAB
     Indication: LIP AND/OR ORAL CAVITY CANCER
     Dosage: 400 MG, UNK
     Route: 065
     Dates: start: 20151215
  6. CISPLATIN. [Suspect]
     Active Substance: CISPLATIN
     Indication: LIP AND/OR ORAL CAVITY CANCER
     Dosage: 53 MG, UNK
     Route: 065
     Dates: start: 20151218, end: 20151227

REACTIONS (1)
  - White blood cell count decreased [Recovered/Resolved]

NARRATIVE: CASE EVENT DATE: 20151227
